FAERS Safety Report 15583629 (Version 1)
Quarter: 2018Q4

REPORT INFORMATION
  Report Type: Spontaneous
  Country: US (occurrence: US)
  Receive Date: 20181031
  Receipt Date: 20181031
  Transmission Date: 20190205
  Serious: No
  Sender: FDA-Public Use
  Company Number: None

PATIENT
  Age: 71 Year
  Sex: Female

DRUGS (2)
  1. IBRANCE [Suspect]
     Active Substance: PALBOCICLIB
     Route: 048
     Dates: start: 201807
  2. FASLODEX [Concomitant]
     Active Substance: FULVESTRANT

REACTIONS (5)
  - Hyperhidrosis [None]
  - Hot flush [None]
  - Burning sensation [None]
  - Blood glucose increased [None]
  - Dyspnoea [None]

NARRATIVE: CASE EVENT DATE: 20181030
